FAERS Safety Report 4509295-7 (Version None)
Quarter: 2004Q4

REPORT INFORMATION
  Report Type: 
  Country: None (occurrence: None)
  Receive Date: 20041025
  Receipt Date: 20040707
  Transmission Date: 20050328
  Serious: Yes (Other)
  Sender: FDA-Public Use
  Company Number: US-JNJFOC-20040702201

PATIENT
  Age: 64 Year
  Sex: Female

DRUGS (18)
  1. REMICADE [Suspect]
     Indication: RHEUMATOID ARTHRITIS
     Dosage: 600 MG, INTRAVENOUS
     Route: 042
     Dates: start: 20030402
  2. REMICADE [Suspect]
     Indication: RHEUMATOID ARTHRITIS
     Dosage: 600 MG, INTRAVENOUS
     Route: 042
     Dates: start: 20030415
  3. REMICADE [Suspect]
     Indication: RHEUMATOID ARTHRITIS
     Dosage: 600 MG, INTRAVENOUS
     Route: 042
     Dates: start: 20030519
  4. REMICADE [Suspect]
     Indication: RHEUMATOID ARTHRITIS
     Dosage: 600 MG, INTRAVENOUS
     Route: 042
     Dates: start: 20030714
  5. REMICADE [Suspect]
     Indication: RHEUMATOID ARTHRITIS
     Dosage: 600 MG, INTRAVENOUS
     Route: 042
     Dates: start: 20030910
  6. REMICADE [Suspect]
     Indication: RHEUMATOID ARTHRITIS
     Dosage: 600 MG, INTRAVENOUS
     Route: 042
     Dates: start: 20031105
  7. REMICADE [Suspect]
     Indication: RHEUMATOID ARTHRITIS
     Dosage: 600 MG, INTRAVENOUS
     Route: 042
     Dates: start: 20040107
  8. REMICADE [Suspect]
     Indication: RHEUMATOID ARTHRITIS
     Dosage: 600 MG, INTRAVENOUS
     Route: 042
     Dates: start: 20040302
  9. REMICADE [Suspect]
     Indication: RHEUMATOID ARTHRITIS
     Dosage: 600 MG, INTRAVENOUS
     Route: 042
     Dates: start: 20040426
  10. REMICADE [Suspect]
     Indication: RHEUMATOID ARTHRITIS
     Dosage: 600 MG, INTRAVENOUS
     Route: 042
     Dates: start: 20040622
  11. FOSAMAX [Concomitant]
  12. PREDNISONE [Concomitant]
  13. PEPCID (FAMOTIDINE) UNSPECIFIED [Concomitant]
  14. TRIAMCINALONE (TRIAMCINOLONE) [Concomitant]
  15. FLONASE [Concomitant]
  16. CALCIUM (CALCIUM) [Concomitant]
  17. VITAMIN E [Concomitant]
  18. ARAVA [Concomitant]

REACTIONS (3)
  - HERPES ZOSTER [None]
  - LYMPHOMA [None]
  - PANNICULITIS [None]
